FAERS Safety Report 6997371-9 (Version None)
Quarter: 2010Q3

REPORT INFORMATION
  Report Type: 
  Country: None (occurrence: None)
  Receive Date: 20100918
  Receipt Date: 20091005
  Transmission Date: 20110219
  Serious: No
  Sender: FDA-Public Use
  Company Number: US-WYE-H11444709

PATIENT
  Sex: Female

DRUGS (9)
  1. EFFEXOR XR [Suspect]
     Indication: DEPRESSION
     Route: 048
     Dates: start: 20010101, end: 20091001
  2. EFFEXOR XR [Suspect]
     Indication: HOT FLUSH
  3. SYNTHROID [Concomitant]
  4. GABAPENTIN [Concomitant]
  5. LIPITOR [Concomitant]
  6. INSULIN [Concomitant]
  7. TOPROL-XL [Concomitant]
  8. DIGOXIN [Concomitant]
  9. NEXIUM [Concomitant]

REACTIONS (2)
  - DRUG WITHDRAWAL SYNDROME [None]
  - HEART RATE INCREASED [None]
